FAERS Safety Report 17161424 (Version 2)
Quarter: 2019Q4

REPORT INFORMATION
  Report Type: Spontaneous
  Country: GR (occurrence: GR)
  Receive Date: 20191216
  Receipt Date: 20191219
  Transmission Date: 20200122
  Serious: Yes (Death, Hospitalization, Other)
  Sender: FDA-Public Use
  Company Number: GR-SA-2019SA341620

PATIENT
  Age: 3 Year
  Sex: Male

DRUGS (1)
  1. CEREZYME [Suspect]
     Active Substance: IMIGLUCERASE
     Indication: GAUCHER^S DISEASE TYPE III
     Dosage: UNK UNK, UNK
     Route: 041
     Dates: start: 20190912, end: 20191206

REACTIONS (2)
  - Death [Fatal]
  - Hyperpyrexia [Unknown]

NARRATIVE: CASE EVENT DATE: 20190912
